FAERS Safety Report 5289311-8 (Version None)
Quarter: 2007Q2

REPORT INFORMATION
  Report Type: 
  Country: None (occurrence: None)
  Receive Date: 20070406
  Receipt Date: 20070330
  Transmission Date: 20071010
  Serious: Yes (Life-Threatening, Other)
  Sender: FDA-Public Use
  Company Number: JP-JNJFOC-20070303583

PATIENT
  Age: 87 Year
  Sex: Male

DRUGS (15)
  1. RISPERDAL [Suspect]
     Route: 048
  2. RISPERDAL [Suspect]
     Indication: PSYCHOTIC DISORDER DUE TO A GENERAL MEDICAL CONDITION
     Route: 048
  3. IMPROMEN [Suspect]
     Route: 048
  4. IMPROMEN [Suspect]
     Indication: PSYCHOTIC DISORDER DUE TO A GENERAL MEDICAL CONDITION
     Route: 048
  5. TETRAMIDE [Suspect]
     Route: 048
  6. TETRAMIDE [Suspect]
     Indication: PSYCHOTIC DISORDER DUE TO A GENERAL MEDICAL CONDITION
     Route: 048
  7. LORAZEPAM [Suspect]
     Route: 048
  8. LORAZEPAM [Suspect]
     Indication: PSYCHOTIC DISORDER DUE TO A GENERAL MEDICAL CONDITION
     Route: 048
  9. MYSLEE [Suspect]
     Route: 048
  10. MYSLEE [Suspect]
     Indication: PSYCHOTIC DISORDER DUE TO A GENERAL MEDICAL CONDITION
     Route: 048
  11. HALCION [Concomitant]
     Route: 048
  12. ASPIRIN [Concomitant]
     Route: 048
  13. GRAMALIL [Concomitant]
     Route: 048
  14. JUVELA [Concomitant]
     Route: 048
  15. HALOPERIDOL [Concomitant]
     Route: 048

REACTIONS (3)
  - DEPRESSED LEVEL OF CONSCIOUSNESS [None]
  - ILEUS PARALYTIC [None]
  - VENTRICULAR TACHYCARDIA [None]
